FAERS Safety Report 13759565 (Version 2)
Quarter: 2017Q3

REPORT INFORMATION
  Report Type: Spontaneous
  Country: US (occurrence: US)
  Receive Date: 20170717
  Receipt Date: 20170815
  Transmission Date: 20171127
  Serious: Yes (Other)
  Sender: FDA-Public Use
  Company Number: US-SMITH AND NEPHEW, INC-2017SMT00500

PATIENT
  Age: 64 Year
  Sex: Male

DRUGS (11)
  1. BUPROPION ER [Concomitant]
     Active Substance: BUPROPION
     Dosage: 150 MG, UNK
  2. COLLAGENASE SANTYL [Suspect]
     Active Substance: COLLAGENASE CLOSTRIDIUM HISTOLYTICUM
     Indication: WOUND
     Dosage: UNK, 1X/DAY
     Route: 061
     Dates: start: 2016, end: 201704
  3. PRO-OPTIC AREDS [Concomitant]
     Dosage: 2 DOSAGE UNITS, 1X/DAY
  4. MILK THISTLE [Concomitant]
     Active Substance: MILK THISTLE
  5. TURMERIC [Concomitant]
     Active Substance: HERBALS\TURMERIC
  6. OMEGA 3 [Concomitant]
     Active Substance: OMEGA-3 FATTY ACIDS
  7. COLLAGENASE SANTYL [Suspect]
     Active Substance: COLLAGENASE CLOSTRIDIUM HISTOLYTICUM
     Dosage: UNK, 1X/DAY
     Route: 061
     Dates: start: 201706, end: 2017
  8. CLONAZEPAM. [Concomitant]
     Active Substance: CLONAZEPAM
     Dosage: 0.5 TO 1 MG, 1X/DAY AT BEDTIME
  9. ASPIRIN. [Concomitant]
     Active Substance: ASPIRIN
  10. FOLIC ACID. [Concomitant]
     Active Substance: FOLIC ACID
  11. GARLIC. [Concomitant]
     Active Substance: GARLIC

REACTIONS (8)
  - Wound infection staphylococcal [Recovered/Resolved]
  - Discomfort [Recovered/Resolved]
  - Wound infection pseudomonas [Recovered/Resolved]
  - Wound dehiscence [Unknown]
  - Wound complication [Not Recovered/Not Resolved]
  - Inflammation of wound [Recovered/Resolved]
  - Pain [Recovered/Resolved]
  - Skin exfoliation [Unknown]

NARRATIVE: CASE EVENT DATE: 201703
